FAERS Safety Report 17037914 (Version 1)
Quarter: 2019Q4

REPORT INFORMATION
  Report Type: Spontaneous
  Country: US (occurrence: US)
  Receive Date: 20191115
  Receipt Date: 20191115
  Transmission Date: 20200122
  Serious: No
  Sender: FDA-Public Use
  Company Number: US-009507513-1911USA005951

PATIENT
  Age: 82 Year
  Sex: Female

DRUGS (7)
  1. DROXIDOPA [Interacting]
     Active Substance: DROXIDOPA
     Dosage: 200 MILLIGRAM, BID
  2. DROXIDOPA [Interacting]
     Active Substance: DROXIDOPA
     Dosage: 300 MILLIGRAM, BID
  3. DROXIDOPA [Interacting]
     Active Substance: DROXIDOPA
     Dosage: 100 MILLIGRAM, BID
  4. RIVASTIGMINE. [Suspect]
     Active Substance: RIVASTIGMINE
     Dosage: 9.5 MILLIGRAM, QD
  5. DROXIDOPA [Interacting]
     Active Substance: DROXIDOPA
     Indication: ORTHOSTATIC HYPOTENSION
     Dosage: 100 MILLIGRAM, BID
  6. SERTRALINE HYDROCHLORIDE. [Suspect]
     Active Substance: SERTRALINE HYDROCHLORIDE
     Dosage: 100 MILLIGRAM, QD
  7. SINEMET [Suspect]
     Active Substance: CARBIDOPA\LEVODOPA
     Indication: PARKINSON^S DISEASE
     Dosage: 25 TO 100 MG SEVEN TABLETS DAILY
     Route: 048

REACTIONS (8)
  - Disorganised speech [Recovered/Resolved]
  - Insomnia [Recovered/Resolved]
  - Drug interaction [Unknown]
  - Dizziness [Recovered/Resolved]
  - Mania [Recovered/Resolved]
  - Fatigue [Recovered/Resolved]
  - Confusional state [Recovered/Resolved]
  - Agitation [Recovered/Resolved]
